FAERS Safety Report 5897648-4 (Version None)
Quarter: 2008Q3

REPORT INFORMATION
  Report Type: 
  Country: None (occurrence: None)
  Receive Date: 20080925
  Receipt Date: 20080915
  Transmission Date: 20090109
  Serious: Yes (Hospitalization, Congenital Anomaly, Other)
  Sender: FDA-Public Use
  Company Number: US-AMGEN-US232998

PATIENT
  Sex: Male
  Weight: 3.2 kg

DRUGS (3)
  1. ENBREL [Suspect]
     Indication: RHEUMATOID ARTHRITIS
     Route: 064
     Dates: start: 20051001, end: 20061001
  2. PROZAC [Concomitant]
     Route: 064
  3. ADVIL [Concomitant]
     Route: 064

REACTIONS (12)
  - ASTHENIA [None]
  - COLOBOMA [None]
  - CONGENITAL VESICOURETERIC REFLUX [None]
  - CYSTITIS [None]
  - DEHYDRATION [None]
  - HYPOSPADIAS [None]
  - LARGE FOR DATES BABY [None]
  - POLLAKIURIA [None]
  - PREMATURE BABY [None]
  - PYREXIA [None]
  - SOLITARY KIDNEY [None]
  - URETHRAL STRICTURE POSTOPERATIVE [None]
